FAERS Safety Report 18687372 (Version 1)
Quarter: 2020Q4

REPORT INFORMATION
  Report Type: Spontaneous
  Country: US (occurrence: US)
  Receive Date: 20201231
  Receipt Date: 20201231
  Transmission Date: 20210114
  Serious: Yes (Hospitalization, Other)
  Sender: FDA-Public Use
  Company Number: US-ALKEM LABORATORIES LIMITED-US-ALKEM-2020-09256

PATIENT
  Age: 74 Year
  Sex: Female
  Weight: 63.6 kg

DRUGS (25)
  1. ACICLOVIR [Interacting]
     Active Substance: ACYCLOVIR
     Indication: ANTIVIRAL PROPHYLAXIS
     Dosage: 400 MILLIGRAM, BID
     Route: 048
  2. LIDOCAINE. [Concomitant]
     Active Substance: LIDOCAINE
     Indication: MUSCLE SPASMS
  3. OXYCODONE [Concomitant]
     Active Substance: OXYCODONE
     Indication: PAIN
     Dosage: 10 MILLIGRAM, TID
     Route: 048
  4. DEXAMETHASONE. [Concomitant]
     Active Substance: DEXAMETHASONE
     Indication: PLASMA CELL MYELOMA
     Dosage: 4 MILLIGRAM (EVERY 6 HOURS)
     Route: 048
  5. TIZANIDINE. [Interacting]
     Active Substance: TIZANIDINE
     Indication: MUSCLE SPASMS
  6. DABIGATRAN [Concomitant]
     Active Substance: DABIGATRAN
     Indication: ATRIAL FIBRILLATION
     Dosage: 150 MILLIGRAM, BID
     Route: 048
  7. LABETALOL [Concomitant]
     Active Substance: LABETALOL\LABETALOL HYDROCHLORIDE
     Indication: HYPERTENSION
     Dosage: 200 MILLIGRAM, BID
     Route: 048
  8. AMLODIPINE [Concomitant]
     Active Substance: AMLODIPINE BESYLATE
     Indication: HYPERTENSION
     Dosage: 5 MILLIGRAM, QD
     Route: 048
  9. ACETAMINOPHEN. [Concomitant]
     Active Substance: ACETAMINOPHEN
     Indication: PAIN
  10. DEXAMETHASONE. [Concomitant]
     Active Substance: DEXAMETHASONE
     Dosage: 20 MILLIGRAM, QD
     Route: 042
  11. BACLOFEN. [Concomitant]
     Active Substance: BACLOFEN
     Indication: PAIN
     Dosage: 10 MILLIGRAM, TID
     Route: 048
  12. BACLOFEN. [Concomitant]
     Active Substance: BACLOFEN
     Indication: MUSCLE SPASMS
  13. METHADONE [Concomitant]
     Active Substance: METHADONE HYDROCHLORIDE
     Indication: MUSCLE SPASMS
     Dosage: 5 MILLIGRAM (EVERY 8 HOURS)
     Route: 048
  14. ACETAMINOPHEN/HYDROCODONE [Concomitant]
     Active Substance: ACETAMINOPHEN\HYDROCODONE
     Indication: PAIN
     Dosage: UNK, ACETAMINOPHEN 325MG/HYDROCODONE 5 MG
     Route: 048
  15. DEXAMETHASONE. [Concomitant]
     Active Substance: DEXAMETHASONE
     Indication: MUSCLE SPASMS
     Dosage: 4 MILLIGRAM (EVERY 8 HOURS)
     Route: 048
  16. BORTEZOMIB. [Interacting]
     Active Substance: BORTEZOMIB
     Indication: PLASMA CELL MYELOMA
     Dosage: 2.3 MILLIGRAM
     Route: 058
  17. ACETAMINOPHEN. [Concomitant]
     Active Substance: ACETAMINOPHEN
     Indication: MUSCLE SPASMS
     Dosage: 650 MILLIGRAM (EVERY 4 HOURS AS NEEDED)
     Route: 048
  18. OXYCODONE [Concomitant]
     Active Substance: OXYCODONE
     Dosage: 10 MILLIGRAM (EVERY 4 HOURS AS NEEDED)
     Route: 048
  19. LIDOCAINE. [Concomitant]
     Active Substance: LIDOCAINE
     Indication: PAIN
     Dosage: UNK, QD
     Route: 062
  20. TIZANIDINE. [Suspect]
     Active Substance: TIZANIDINE
     Indication: PAIN
     Dosage: 2 MILLIGRAM, TID
     Route: 048
  21. HYDRALAZINE [Interacting]
     Active Substance: HYDRALAZINE HYDROCHLORIDE
     Indication: HYPERTENSION
     Dosage: 25 MILLIGRAM, BID
     Route: 048
  22. LABETALOL [Concomitant]
     Active Substance: LABETALOL\LABETALOL HYDROCHLORIDE
     Dosage: 300 MILLIGRAM, BID
     Route: 048
  23. METHADONE [Concomitant]
     Active Substance: METHADONE HYDROCHLORIDE
     Indication: PAIN
     Dosage: 5 MILLIGRAM (EVERY 6 HOURS)
     Route: 048
  24. DEXAMETHASONE. [Concomitant]
     Active Substance: DEXAMETHASONE
     Indication: PAIN
     Dosage: 4 MILLIGRAM, QD
     Route: 042
  25. PANTOPRAZOLE [Concomitant]
     Active Substance: PANTOPRAZOLE
     Indication: GASTROINTESTINAL DISORDER PROPHYLAXIS
     Dosage: 40 MILLIGRAM, QD
     Route: 048

REACTIONS (3)
  - Hepatitis acute [Unknown]
  - Drug interaction [Unknown]
  - Drug level increased [Unknown]
